FAERS Safety Report 8140554-5 (Version None)
Quarter: 2012Q1

REPORT INFORMATION
  Report Type: 
  Country: None (occurrence: None)
  Receive Date: 20120216
  Receipt Date: 20120209
  Transmission Date: 20120608
  Serious: Yes (Other)
  Sender: FDA-Public Use
  Company Number: US-PFIZER INC-2011203111

PATIENT
  Sex: Female

DRUGS (1)
  1. CHANTIX [Suspect]
     Indication: SMOKING CESSATION THERAPY
     Dosage: 0.5 TO 1 MG
     Dates: start: 20090820

REACTIONS (6)
  - HYPOAESTHESIA [None]
  - MIGRAINE [None]
  - FACIAL SPASM [None]
  - BLINDNESS [None]
  - BENIGN INTRACRANIAL HYPERTENSION [None]
  - TINNITUS [None]
